FAERS Safety Report 17067483 (Version 1)
Quarter: 2019Q4

REPORT INFORMATION
  Report Type: Spontaneous
  Country: US (occurrence: US)
  Receive Date: 20191122
  Receipt Date: 20191122
  Transmission Date: 20200122
  Serious: No
  Sender: FDA-Public Use
  Company Number: US-BIODELIVERY SCIENCES INTERNATIONAL-2019BDSI0601

PATIENT
  Age: 66 Year
  Sex: Male
  Weight: 93.52 kg

DRUGS (3)
  1. BUPRENORPHINE. [Suspect]
     Active Substance: BUPRENORPHINE
     Indication: PAIN
     Route: 002
     Dates: start: 20190622, end: 20190710
  2. HYDROCODONE [Concomitant]
     Active Substance: HYDROCODONE
     Indication: PAIN
     Dosage: UNKNOWN
     Route: 048
     Dates: start: 201904
  3. GABAPENTIN. [Concomitant]
     Active Substance: GABAPENTIN
     Indication: PAIN
     Route: 048
     Dates: start: 201302

REACTIONS (8)
  - Somnolence [Unknown]
  - Product dispensing error [Unknown]
  - Dyspnoea [Unknown]
  - Feeling abnormal [Unknown]
  - Constipation [Unknown]
  - Confusional state [Unknown]
  - Depressed mood [Unknown]
  - Wrong dose [Unknown]

NARRATIVE: CASE EVENT DATE: 2019
